FAERS Safety Report 5659333-3 (Version None)
Quarter: 2008Q1

REPORT INFORMATION
  Report Type: 
  Country: None (occurrence: None)
  Receive Date: 20080311
  Receipt Date: 20080304
  Transmission Date: 20080703
  Serious: Yes (Other)
  Sender: FDA-Public Use
  Company Number: CA-WYE-H02124608

PATIENT
  Sex: Male

DRUGS (8)
  1. DRISTAN [Suspect]
     Indication: SINUS CONGESTION
     Dosage: 10 TIMES DAILY
     Route: 045
     Dates: start: 19910101, end: 20080111
  2. DITROPAN [Concomitant]
     Indication: HYPERTONIC BLADDER
     Dosage: UNKNOWN
     Route: 065
  3. DANTRIUM [Concomitant]
     Indication: MUSCLE SPASMS
     Dosage: UNKNOWN
     Route: 065
     Dates: start: 19900101
  4. BACLOFEN [Concomitant]
     Indication: MUSCLE SPASMS
     Dosage: UNKNOWN
     Route: 065
     Dates: start: 19900101
  5. NEURONTIN [Concomitant]
     Indication: MUSCLE SPASMS
     Dosage: UNKNOWN
     Route: 065
     Dates: start: 19900101
  6. TIZANIDINE HCL [Concomitant]
     Indication: MUSCLE SPASMS
     Dosage: UNKNOWN
     Route: 065
     Dates: start: 19900101
  7. AMITRIPTYLINE HCL [Concomitant]
     Indication: DRUG USE FOR UNKNOWN INDICATION
     Dosage: UNKNOWN
     Route: 065
  8. DIAZEPAM [Concomitant]
     Indication: MUSCLE SPASMS
     Dosage: UNKNOWN
     Route: 065

REACTIONS (4)
  - DRUG DEPENDENCE [None]
  - NASAL DISCOMFORT [None]
  - OVERDOSE [None]
  - PHARMACEUTICAL PRODUCT COMPLAINT [None]
